FAERS Safety Report 21595385 (Version 1)
Quarter: 2022Q4

REPORT INFORMATION
  Report Type: Spontaneous
  Country: US (occurrence: US)
  Receive Date: 20221115
  Receipt Date: 20221115
  Transmission Date: 20230113
  Serious: Yes (Hospitalization, Other)
  Sender: FDA-Public Use
  Company Number: US-009507513-2211USA004008

PATIENT
  Age: 56 Year
  Sex: Male

DRUGS (1)
  1. KEYTRUDA [Suspect]
     Active Substance: PEMBROLIZUMAB
     Indication: Prostate cancer

REACTIONS (4)
  - Acute kidney injury [Unknown]
  - Tumour pseudoprogression [Unknown]
  - Tumour hyperprogression [Unknown]
  - Product use in unapproved indication [Unknown]
